FAERS Safety Report 21871929 (Version 5)
Quarter: 2023Q1

REPORT INFORMATION
  Report Type: Spontaneous
  Country: US (occurrence: US)
  Receive Date: 20230117
  Receipt Date: 20230214
  Transmission Date: 20230417
  Serious: Yes (Other)
  Sender: FDA-Public Use
  Company Number: US-PFIZER INC-PV202300006965

PATIENT
  Age: 60 Year
  Sex: Female
  Weight: 72.109 kg

DRUGS (1)
  1. IBRANCE [Suspect]
     Active Substance: PALBOCICLIB
     Dosage: UNK

REACTIONS (10)
  - Thrombosis [Unknown]
  - Muscle spasms [Unknown]
  - Nausea [Recovering/Resolving]
  - Fatigue [Recovering/Resolving]
  - Peripheral swelling [Unknown]
  - Hot flush [Unknown]
  - Feeling cold [Unknown]
  - Weight increased [Unknown]
  - Decreased appetite [Recovering/Resolving]
  - Full blood count decreased [Unknown]
